FAERS Safety Report 7506823-4 (Version None)
Quarter: 2011Q2

REPORT INFORMATION
  Report Type: 
  Country: None (occurrence: None)
  Receive Date: 20110526
  Receipt Date: 20110516
  Transmission Date: 20111010
  Serious: Yes (Other)
  Sender: FDA-Public Use
  Company Number: A0929044A

PATIENT
  Age: 1 Year
  Sex: Male

DRUGS (3)
  1. OXYGEN [Concomitant]
  2. FLOLAN [Suspect]
     Dosage: 64NGKM SEE DOSAGE TEXT
     Route: 042
     Dates: start: 20110125
  3. FLOLAN [Suspect]
     Route: 042
     Dates: start: 20110125

REACTIONS (2)
  - SYNCOPE [None]
  - CYANOSIS [None]
